FAERS Safety Report 8925691 (Version 3)
Quarter: 2012Q4

REPORT INFORMATION
  Report Type: Report from Study
  Country: AT (occurrence: AT)
  Receive Date: 20121126
  Receipt Date: 20121207
  Transmission Date: 20130627
  Serious: Yes (Hospitalization)
  Sender: FDA-Public Use
  Company Number: AT-ROCHE-1086413

PATIENT
  Age: 89 Year
  Sex: Female
  Weight: 76.5 kg

DRUGS (19)
  1. VISMODEGIB [Suspect]
     Indication: BASAL CELL CARCINOMA
     Dosage: Last dose prior to SAE:09/Jul/2012
     Route: 048
     Dates: start: 20120611
  2. MIRTAZAPIN [Concomitant]
     Route: 065
     Dates: end: 20120710
  3. ASS [Concomitant]
     Route: 065
     Dates: end: 20120710
  4. ATACAND [Concomitant]
     Indication: HYPERTENSION
  5. CAL-D-VITA [Concomitant]
     Route: 065
     Dates: end: 20120710
  6. ALNA [Concomitant]
     Indication: BLADDER IRRITATION
     Dosage: Retard
     Route: 065
     Dates: end: 20120710
  7. ARICEPT [Concomitant]
     Indication: DEMENTIA
     Route: 065
     Dates: end: 20120710
  8. MYOCHOLINE [Concomitant]
     Indication: DEMENTIA
     Route: 065
     Dates: end: 20120710
  9. NORVASC [Concomitant]
     Indication: HYPERTENSION
     Route: 065
     Dates: end: 20120710
  10. LASIX [Concomitant]
     Indication: HYPERTENSION
     Route: 065
     Dates: end: 20120710
  11. SEROQUEL [Concomitant]
     Indication: DEMENTIA
     Route: 065
     Dates: end: 20120710
  12. PANTOLOC [Concomitant]
     Route: 065
     Dates: start: 20120625, end: 20120710
  13. ROCALTROL [Concomitant]
     Indication: HYPOPARATHYROIDISM
     Route: 065
     Dates: start: 20120625, end: 20120710
  14. SELOKEN [Concomitant]
     Indication: CARDIAC FAILURE
     Dosage: Retard
     Route: 065
     Dates: start: 20120625, end: 20120710
  15. AXURA [Concomitant]
     Route: 065
     Dates: start: 20120710
  16. RISPERDAL [Concomitant]
     Route: 065
     Dates: start: 20120710
  17. UROSIN 100 [Concomitant]
     Indication: HYPERURICAEMIA
     Route: 065
     Dates: start: 20120710
  18. INSULATARD [Concomitant]
     Indication: TYPE 2 DIABETES MELLITUS
     Dosage: 6 IE
     Route: 065
     Dates: start: 20120710
  19. LOVENOX [Concomitant]
     Route: 065
     Dates: start: 20120710, end: 20120801

REACTIONS (5)
  - Fatigue [Recovering/Resolving]
  - Dehydration [Unknown]
  - Urinary tract infection [Recovered/Resolved]
  - Type 2 diabetes mellitus [Recovered/Resolved]
  - Hyperthyroidism [Unknown]
